FAERS Safety Report 5134409-8 (Version None)
Quarter: 2006Q4

REPORT INFORMATION
  Report Type: 
  Country: None (occurrence: None)
  Receive Date: 20061025
  Receipt Date: 20051030
  Transmission Date: 20070319
  Serious: Yes (Other)
  Sender: FDA-Public Use
  Company Number: PHEH2005US12058

PATIENT
  Age: 42 Year
  Sex: Male

DRUGS (1)
  1. TEGRETOL [Suspect]
     Indication: COMPLEX PARTIAL SEIZURES
     Dosage: 400 MG, TID
     Route: 048
     Dates: start: 19940101

REACTIONS (7)
  - BACK PAIN [None]
  - BRONCHITIS [None]
  - COMPRESSION FRACTURE [None]
  - OSTEOPENIA [None]
  - OSTEOPOROSIS [None]
  - SPINAL FRACTURE [None]
  - URINE CALCIUM INCREASED [None]
